FAERS Safety Report 6202164-6 (Version None)
Quarter: 2009Q2

REPORT INFORMATION
  Report Type: 
  Country: None (occurrence: None)
  Receive Date: 20090526
  Receipt Date: 20090511
  Transmission Date: 20091009
  Serious: Yes (Hospitalization)
  Sender: FDA-Public Use
  Company Number: US-ALEXION-A200900380

PATIENT
  Sex: Male

DRUGS (9)
  1. SOLIRIS [Suspect]
     Indication: PAROXYSMAL NOCTURNAL HAEMOGLOBINURIA
     Dosage: 600 MG, QW
     Route: 042
     Dates: start: 20070502, end: 20070523
  2. SOLIRIS [Suspect]
     Dosage: 900 MG, Q2W
     Route: 042
     Dates: start: 20070530
  3. SOLIRIS [Suspect]
     Dosage: 900 MG, Q12D
     Route: 042
  4. DUONEB [Concomitant]
     Indication: CHRONIC OBSTRUCTIVE PULMONARY DISEASE
     Dosage: Q4H
  5. ADVAIR HFA [Concomitant]
     Indication: CHRONIC OBSTRUCTIVE PULMONARY DISEASE
     Dosage: 1 PUFF, BID, Q12H
  6. SPIRIVA [Concomitant]
     Indication: EMPHYSEMA
     Dosage: 1 CAP, QD
  7. BECONASE [Concomitant]
     Indication: NASAL MUCOSAL DISORDER
     Dosage: 2 SPRAYS A NOSTRIL, QD
     Route: 045
  8. LOVENOX [Concomitant]
     Dosage: UNK
     Dates: end: 20090501
  9. FRAGMIN [Suspect]
     Indication: PROPHYLAXIS
     Dosage: 10000 UT, QD
     Dates: start: 20090509

REACTIONS (1)
  - PNEUMONIA [None]
